FAERS Safety Report 5187194-8 (Version None)
Quarter: 2006Q4

REPORT INFORMATION
  Report Type: 
  Country: None (occurrence: None)
  Receive Date: 20061214
  Receipt Date: 20061204
  Transmission Date: 20070319
  Serious: Yes (Other)
  Sender: FDA-Public Use
  Company Number: 2006150486

PATIENT
  Age: 58 Year
  Sex: Female

DRUGS (3)
  1. LYRICA [Suspect]
     Indication: ANKYLOSING SPONDYLITIS
     Dosage: 150 MG (75 MG, 2 IN 1 D), ORAL
     Route: 048
  2. METHADONE HCL [Suspect]
     Indication: PAIN
  3. ALL OTHER THERAPEUTIC PRODUCTS [Concomitant]

REACTIONS (4)
  - DIZZINESS [None]
  - DRUG INTERACTION [None]
  - FEELING ABNORMAL [None]
  - GRIP STRENGTH DECREASED [None]
